FAERS Safety Report 14317448 (Version 1)
Quarter: 2017Q4

REPORT INFORMATION
  Report Type: Report from Study
  Country: CN (occurrence: CN)
  Receive Date: 20171222
  Receipt Date: 20171222
  Transmission Date: 20180321
  Serious: Yes (Other)
  Sender: FDA-Public Use
  Company Number: CN-ROCHE-1732602

PATIENT
  Sex: Male
  Weight: 66 kg

DRUGS (4)
  1. 5-FLUOROURACIL [Suspect]
     Active Substance: FLUOROURACIL
     Indication: RECTAL CANCER
     Route: 065
  2. IRINOTECAN [Suspect]
     Active Substance: IRINOTECAN
     Indication: RECTAL CANCER
     Route: 065
  3. FOLINIC ACID [Suspect]
     Active Substance: LEUCOVORIN
     Indication: RECTAL CANCER
     Route: 065
  4. AVASTIN [Suspect]
     Active Substance: BEVACIZUMAB
     Indication: RECTAL CANCER
     Route: 041
     Dates: start: 20160108

REACTIONS (3)
  - Asthenia [Unknown]
  - Bone marrow failure [Unknown]
  - Atrial fibrillation [Unknown]
